FAERS Safety Report 10216916 (Version 2)
Quarter: 2014Q2

REPORT INFORMATION
  Report Type: Other
  Country: CA (occurrence: CA)
  Receive Date: 20140604
  Receipt Date: 20140604
  Transmission Date: 20141212
  Serious: Yes (Hospitalization, Other)
  Sender: FDA-Public Use
  Company Number: CA-GSKPPD-2014GSK008038

PATIENT
  Age: 57 Year
  Sex: 0

DRUGS (3)
  1. AVANDIA [Suspect]
     Indication: DIABETES MELLITUS
     Dosage: DATES OF AVANDIA USE COULD NOT BE CONFIRMED IN RECORDS REVIEWED.
     Route: 048
  2. METOPROLOL [Concomitant]
  3. COATED ASPIRIN [Concomitant]

REACTIONS (4)
  - Myocardial infarction [Recovered/Resolved]
  - Coronary artery disease [None]
  - Acute pulmonary oedema [Recovered/Resolved]
  - Left atrial dilatation [None]
